FAERS Safety Report 6552236-1 (Version None)
Quarter: 2010Q1

REPORT INFORMATION
  Report Type: 
  Country: None (occurrence: None)
  Receive Date: 20100121
  Receipt Date: 20100106
  Transmission Date: 20100710
  Serious: Yes (Death, Hospitalization)
  Sender: FDA-Public Use
  Company Number: KV201000009

PATIENT
  Age: 81 Year
  Sex: Male
  Weight: 80.9 kg

DRUGS (17)
  1. MORPHINE SULFATE [Suspect]
     Indication: PAIN
     Dosage: 60 MG Q 12H, ORAL
     Route: 048
  2. MORPHINE SULFATE [Suspect]
     Indication: PAIN
     Dosage: 15 MG, Q12H, ORAL
     Route: 048
  3. MORPHINE SULFATE [Concomitant]
  4. REGLAN /00041901/ (METOCLOPRAMIDE) [Concomitant]
  5. SENOKOT /00142201/ (SENNA ALEXANDRINA) [Concomitant]
  6. LIDODERM [Concomitant]
  7. COUMADIN [Concomitant]
  8. COREG [Concomitant]
  9. DUONEB [Concomitant]
  10. CELEBREX [Concomitant]
  11. SPIRIVA [Concomitant]
  12. ALBUTEROL /00139501/ (SALBUTAMOL) [Concomitant]
  13. DILTIAZEM [Concomitant]
  14. LASIX [Concomitant]
  15. PREDNISONE [Concomitant]
  16. SPIRONOLACTONE [Concomitant]
  17. GLYBURIDE [Concomitant]

REACTIONS (29)
  - ABDOMINAL DISTENSION [None]
  - ACIDOSIS [None]
  - ARRHYTHMIA [None]
  - ASTHENIA [None]
  - CARDIAC FAILURE CONGESTIVE [None]
  - CHRONIC OBSTRUCTIVE PULMONARY DISEASE [None]
  - CONFUSIONAL STATE [None]
  - CYANOSIS [None]
  - FATIGUE [None]
  - FEELING COLD [None]
  - LETHARGY [None]
  - LUNG NEOPLASM MALIGNANT [None]
  - MIOSIS [None]
  - OEDEMA PERIPHERAL [None]
  - OVERDOSE [None]
  - OXYGEN SATURATION DECREASED [None]
  - PERIPHERAL COLDNESS [None]
  - PSEUDOMONAS INFECTION [None]
  - PYREXIA [None]
  - RENAL FAILURE ACUTE [None]
  - RESPIRATORY ACIDOSIS [None]
  - RESPIRATORY FAILURE [None]
  - SINUS TACHYCARDIA [None]
  - SNORING [None]
  - SOMNOLENCE [None]
  - STAPHYLOCOCCAL INFECTION [None]
  - TACHYPNOEA [None]
  - UNRESPONSIVE TO STIMULI [None]
  - VOMITING [None]
